FAERS Safety Report 8538037-3 (Version None)
Quarter: 2012Q3

REPORT INFORMATION
  Report Type: 
  Country: None (occurrence: None)
  Receive Date: 20120725
  Receipt Date: 20120719
  Transmission Date: 20120928
  Serious: Yes (Hospitalization)
  Sender: FDA-Public Use
  Company Number: BE-PFIZER INC-2012176149

PATIENT
  Sex: Female
  Weight: 99.5 kg

DRUGS (15)
  1. PARLODEL [Concomitant]
     Indication: GALACTOSAEMIA
     Dosage: UNK
     Dates: start: 19810701
  2. DUPHASTON [Concomitant]
     Indication: BLOOD LUTEINISING HORMONE DECREASED
     Dosage: UNK
     Dates: start: 19810701
  3. PRASTERONE [Concomitant]
     Indication: BLOOD CORTICOTROPHIN DECREASED
     Dosage: UNK
     Dates: start: 20010606
  4. FLECAINIDE ACETATE [Concomitant]
     Indication: ARRHYTHMIA
     Dosage: UNK
     Dates: start: 20040715
  5. SOMATROPIN RDNA [Suspect]
     Dosage: 0.2 MG, 7/WEEK
     Route: 058
     Dates: start: 20020320
  6. ESTROGEL [Concomitant]
     Indication: BLOOD FOLLICLE STIMULATING HORMONE DECREASED
  7. ESTROGEL [Concomitant]
     Indication: HYPOGONADISM FEMALE
  8. TAMBOCOR [Concomitant]
     Indication: ATRIAL FLUTTER
  9. DUPHASTON [Concomitant]
     Indication: BLOOD FOLLICLE STIMULATING HORMONE DECREASED
  10. TAMBOCOR [Concomitant]
     Indication: ATRIAL FIBRILLATION
     Dosage: UNK
     Dates: start: 20020115
  11. ESTROGEL [Concomitant]
     Indication: BLOOD LUTEINISING HORMONE DECREASED
     Dosage: UNK
     Dates: start: 19810701
  12. DUPHASTON [Concomitant]
     Indication: HYPOGONADISM FEMALE
  13. LEVOTHYROXINE [Concomitant]
     Indication: BLOOD THYROID STIMULATING HORMONE DECREASED
     Dosage: UNK
     Dates: start: 19820701
  14. LEVOTHYROXINE [Concomitant]
     Indication: PRIMARY HYPOTHYROIDISM
  15. HYDROCORTISONE [Concomitant]
     Indication: BLOOD CORTICOTROPHIN DECREASED
     Dosage: UNK
     Dates: start: 19860701

REACTIONS (1)
  - HIP ARTHROPLASTY [None]
